FAERS Safety Report 11046850 (Version 5)
Quarter: 2015Q3

REPORT INFORMATION
  Report Type: Spontaneous
  Country: US (occurrence: US)
  Receive Date: 20150420
  Receipt Date: 20150915
  Transmission Date: 20151125
  Serious: Yes (Death, Life-Threatening, Hospitalization)
  Sender: FDA-Public Use
  Company Number: US-ASTRAZENECA-2015SE36144

PATIENT
  Age: 785 Month
  Sex: Male

DRUGS (1)
  1. LYNPARZA [Suspect]
     Active Substance: OLAPARIB
     Indication: RECTAL CANCER
     Route: 048

REACTIONS (9)
  - Balance disorder [Unknown]
  - Headache [Unknown]
  - Pneumonia [Fatal]
  - Vomiting [Unknown]
  - Dehydration [Unknown]
  - Product use issue [Unknown]
  - Off label use [Unknown]
  - Fall [Unknown]
  - Decreased appetite [Unknown]

NARRATIVE: CASE EVENT DATE: 201504
